FAERS Safety Report 7909782-5 (Version None)
Quarter: 2011Q4

REPORT INFORMATION
  Report Type: 
  Country: None (occurrence: None)
  Receive Date: 20111111
  Receipt Date: 20111031
  Transmission Date: 20120403
  Serious: No
  Sender: FDA-Public Use
  Company Number: US-BAYER-2011-106919

PATIENT
  Age: 53 Year
  Sex: Female
  Weight: 79.365 kg

DRUGS (1)
  1. ALEVE (CAPLET) [Suspect]
     Indication: BACK PAIN
     Dosage: 2 DF, PRN, BOTTLE COUNT 200CT
     Route: 048
     Dates: start: 20110901, end: 20111026

REACTIONS (1)
  - DYSPEPSIA [None]
